FAERS Safety Report 5311927-0 (Version None)
Quarter: 2007Q2

REPORT INFORMATION
  Report Type: 
  Country: None (occurrence: None)
  Receive Date: 20070430
  Receipt Date: 20060327
  Transmission Date: 20071010
  Serious: No
  Sender: FDA-Public Use
  Company Number: 2006UW05288

PATIENT
  Sex: Male
  Weight: 92.1 kg

DRUGS (7)
  1. NEXIUM [Suspect]
     Indication: GASTROOESOPHAGEAL REFLUX DISEASE
     Route: 048
  2. ENALAPRIL [Concomitant]
  3. METFORMIN HCL [Concomitant]
  4. SYNTHROID [Concomitant]
  5. ECHINACEA [Concomitant]
  6. CALCIUM CHLORIDE [Concomitant]
  7. VITAMINS [Concomitant]

REACTIONS (2)
  - NASAL CONGESTION [None]
  - THROAT IRRITATION [None]
